FAERS Safety Report 7358497-3 (Version None)
Quarter: 2011Q1

REPORT INFORMATION
  Report Type: 
  Country: None (occurrence: None)
  Receive Date: 20110317
  Receipt Date: 20110303
  Transmission Date: 20110831
  Serious: Yes (Death)
  Sender: FDA-Public Use
  Company Number: US-WATSON-2011-03347

PATIENT
  Age: 70 Year
  Sex: Female

DRUGS (4)
  1. PACLITAXEL [Suspect]
     Indication: NON-SMALL CELL LUNG CANCER
     Dosage: 50 MG/MM WEEKLY
  2. CARBOPLATIN [Suspect]
     Dosage: AREA UNDER THE CURVE 2 WEEKLY
  3. GEMCITABINE [Suspect]
     Indication: NON-SMALL CELL LUNG CANCER
     Dosage: 1000 MG/MM ON DAY 1 AND 8
  4. CARBOPLATIN [Suspect]
     Indication: NON-SMALL CELL LUNG CANCER
     Dosage: AREA UNDER THE CURVE 5 ON DAY 1, GIVEN AT 4-WEEK INTERVAL

REACTIONS (2)
  - OESOPHAGITIS [None]
  - INTESTINAL ISCHAEMIA [None]
